FAERS Safety Report 19046854 (Version 2)
Quarter: 2021Q2

REPORT INFORMATION
  Report Type: Spontaneous
  Country: US (occurrence: US)
  Receive Date: 20210323
  Receipt Date: 20210406
  Transmission Date: 20210717
  Serious: Yes (Hospitalization, Other)
  Sender: FDA-Public Use
  Company Number: US-COLLEGIUM PHARMACEUTICAL, INC.-2021CGM00255

PATIENT
  Age: 62 Year
  Sex: Female
  Weight: 116.33 kg

DRUGS (23)
  1. XTAMPZA ER [Suspect]
     Active Substance: OXYCODONE
     Dosage: 27 MG, ONCE
     Route: 048
     Dates: start: 20210228, end: 20210228
  2. TIZANIDINE. [Concomitant]
     Active Substance: TIZANIDINE
     Dosage: 2?4 MG, 3X/DAY (EVERY 8 HOURS) AS NEEDED
     Route: 048
  3. LANTUS SOLOSTAR [Concomitant]
     Active Substance: INSULIN GLARGINE
     Dosage: 10 U, 1X/DAY AT BEDTIME
     Route: 058
  4. LANSOPRAZOLE DELAYED?RELEASE [Concomitant]
     Dosage: 30 MG, 1X/DAY
     Route: 048
  5. AMITRIPTYLINE [Concomitant]
     Active Substance: AMITRIPTYLINE
     Dosage: 10 MG, 1X/DAY AT BEDTIME
     Route: 048
  6. VITAMIN D3 [Concomitant]
     Active Substance: CHOLECALCIFEROL
     Dosage: 50000 U, 2X/WEEK
     Route: 048
  7. GABAPENTIN. [Concomitant]
     Active Substance: GABAPENTIN
     Dosage: 100?300 MG, UP TO 3X/DAY AS NEEDED
     Route: 048
  8. SIMVASTATIN. [Concomitant]
     Active Substance: SIMVASTATIN
     Dosage: 20 MG, 1X/DAY WITH DINNER
     Route: 048
  9. POTASSIUM CITRATE. [Concomitant]
     Active Substance: POTASSIUM CITRATE
     Dosage: 5 MEQ, 2X/DAY
     Route: 048
  10. IPRATROPIUM?ALBUTEROL [Concomitant]
     Active Substance: ALBUTEROL\IPRATROPIUM
     Dosage: 1 DOSAGE UNITS, 4X/DAY (EVERY 6 HOURS)
  11. BREO ELLIPTA [Concomitant]
     Active Substance: FLUTICASONE FUROATE\VILANTEROL TRIFENATATE
     Dosage: 1 DOSAGE UNITS, 1X/DAY
  12. HUMALOG KWIKPEN [Concomitant]
     Active Substance: INSULIN LISPRO
     Dosage: 6?8 UNITS, 3X/DAY AS NEEDED
     Route: 058
  13. SYMBICORT [Concomitant]
     Active Substance: BUDESONIDE\FORMOTEROL FUMARATE DIHYDRATE
     Dosage: 2 DOSAGE UNITS, 2X/DAY
  14. XTAMPZA ER [Suspect]
     Active Substance: OXYCODONE
     Indication: PAIN
     Dosage: 27 MG, ONCE
     Route: 048
     Dates: start: 20210223, end: 20210223
  15. ASPIRIN. [Concomitant]
     Active Substance: ASPIRIN
     Dosage: 81 MG, 1X/DAY
     Route: 048
  16. MYRBETRIQ [Concomitant]
     Active Substance: MIRABEGRON
     Dosage: 50 MG, 1X/DAY WITH DINNER
     Route: 048
  17. CITALOPRAM [Concomitant]
     Active Substance: CITALOPRAM HYDROBROMIDE
     Dosage: 40 MG, 1X/DAY
     Route: 048
  18. AZITHROMYCIN ANHYDROUS. [Concomitant]
     Active Substance: AZITHROMYCIN ANHYDROUS
     Dosage: 500 MG, 1X/DAY FOR FIVE DAYS
     Route: 048
  19. HYDROCODONE?ACETAMINOPHEN [Concomitant]
     Active Substance: ACETAMINOPHEN\HYDROCODONE
     Dosage: 1 TABLET, 4X/DAY (EVERY 3?6 HOURS) AS NEEDED
  20. MAGNESIUM OXIDE. [Concomitant]
     Active Substance: MAGNESIUM OXIDE
     Dosage: 400 MG, 2X/DAY
     Route: 048
  21. TRAZODONE [Concomitant]
     Active Substance: TRAZODONE HYDROCHLORIDE
     Dosage: 150?300 MG, 1X/DAY AT BEDTIME
     Route: 048
  22. BACLOFEN. [Concomitant]
     Active Substance: BACLOFEN
     Dosage: 10?20 MG, 4X/DAY (EVERY 6 HOURS) AS NEEDED
     Route: 048
  23. CLINDAMYCIN. [Concomitant]
     Active Substance: CLINDAMYCIN
     Dosage: 150 MG, 2X/DAY FOR TEN DAYS
     Route: 048

REACTIONS (5)
  - Hypercapnia [Unknown]
  - Product substitution issue [Recovered/Resolved]
  - Respiratory failure [Recovering/Resolving]
  - Mental status changes [Unknown]
  - Respiratory depression [Recovered/Resolved]

NARRATIVE: CASE EVENT DATE: 20210223
